FAERS Safety Report 10560898 (Version 1)
Quarter: 2014Q4

REPORT INFORMATION
  Report Type: Spontaneous
  Country: US (occurrence: None)
  Receive Date: 20141031
  Receipt Date: 20141031
  Transmission Date: 20150529
  Serious: Yes (Life-Threatening, Hospitalization)
  Sender: FDA-Public Use
  Company Number: None

PATIENT
  Age: 30 Year
  Sex: Male
  Weight: 60.7 kg

DRUGS (3)
  1. PAROXETINE FOR DEPRESSION [Concomitant]
  2. LOPERAMIDE [Suspect]
     Active Substance: LOPERAMIDE
     Indication: DRUG THERAPY
  3. AZATHIOPRINE FOR CROHN^S DISEASE [Concomitant]

REACTIONS (8)
  - Drug abuse [None]
  - Syncope [None]
  - Electrocardiogram QRS complex prolonged [None]
  - Electrocardiogram QT prolonged [None]
  - Ventricular arrhythmia [None]
  - Ventricular tachycardia [None]
  - Ventricular fibrillation [None]
  - Torsade de pointes [None]

NARRATIVE: CASE EVENT DATE: 20141023
